FAERS Safety Report 24888003 (Version 6)
Quarter: 2025Q3

REPORT INFORMATION
  Report Type: Spontaneous
  Country: US (occurrence: US)
  Receive Date: 20250127
  Receipt Date: 20250810
  Transmission Date: 20251021
  Serious: Yes (Other)
  Sender: ALEXION PHARMACEUTICALS
  Company Number: US-AstraZeneca-CH-00790943A

PATIENT
  Sex: Female

DRUGS (1)
  1. ULTOMIRIS [Suspect]
     Active Substance: RAVULIZUMAB-CWVZ
     Indication: Paroxysmal nocturnal haemoglobinuria
     Dosage: UNK, Q8W
     Dates: start: 20240413

REACTIONS (4)
  - Pneumonia [Unknown]
  - Nasopharyngitis [Recovering/Resolving]
  - Illness [Unknown]
  - Haemoglobin decreased [Not Recovered/Not Resolved]
